FAERS Safety Report 5324960-X (Version None)
Quarter: 2007Q2

REPORT INFORMATION
  Report Type: 
  Country: None (occurrence: None)
  Receive Date: 20070510
  Receipt Date: 20070510
  Transmission Date: 20071010
  Serious: Yes (Hospitalization)
  Sender: FDA-Public Use
  Company Number: None

PATIENT
  Sex: Male
  Weight: 88 kg

DRUGS (7)
  1. CYCLOPHOSPHAMIDE [Suspect]
     Dosage: 2000 MG
     Dates: start: 20070418
  2. CYTARABINE [Suspect]
     Dosage: 40 MG  IT THERAPY
     Route: 037
  3. DOXORUBICIN HYDROCHLORIDE [Suspect]
     Dosage: 100 MG
  4. LEUCOVORIN CALCIUM [Suspect]
     Dosage: 130 MG
  5. METHOTREXATE [Suspect]
     Dosage: 1030 MG
     Route: 037
     Dates: start: 20070418
  6. RITUXIMAB (MOAB C2B8 ANTI CD20, CHIMERIC) [Suspect]
     Dosage: 800 MG
  7. VINCRISTINE SULFATE [Suspect]
     Dosage: 2 MG

REACTIONS (9)
  - DISEASE PROGRESSION [None]
  - EPISTAXIS [None]
  - LUNG DISORDER [None]
  - LYMPHADENOPATHY [None]
  - MUCOSAL INFLAMMATION [None]
  - PANCYTOPENIA [None]
  - PULMONARY HYPERTENSION [None]
  - PYREXIA [None]
  - TREATMENT NONCOMPLIANCE [None]
